FAERS Safety Report 6607241-3 (Version None)
Quarter: 2010Q1

REPORT INFORMATION
  Report Type: 
  Country: None (occurrence: None)
  Receive Date: 20100227
  Receipt Date: 20100219
  Transmission Date: 20100710
  Serious: Yes (Hospitalization)
  Sender: FDA-Public Use
  Company Number: US-JNJFOC-20100209447

PATIENT
  Sex: Female
  Weight: 54.43 kg

DRUGS (3)
  1. TOPAMAX [Suspect]
     Indication: MIGRAINE
     Route: 048
  2. TOPAMAX [Suspect]
     Route: 048
  3. BIRTH CONTROL PILLS [Concomitant]
     Indication: CONTRACEPTION
     Route: 048

REACTIONS (7)
  - DYSGEUSIA [None]
  - ELECTROLYTE IMBALANCE [None]
  - HEAT EXHAUSTION [None]
  - MUSCLE FATIGUE [None]
  - MYALGIA [None]
  - PARAESTHESIA [None]
  - WEIGHT DECREASED [None]
